FAERS Safety Report 17154159 (Version 1)
Quarter: 2019Q4

REPORT INFORMATION
  Report Type: Report from Study
  Country: GB (occurrence: GB)
  Receive Date: 20191213
  Receipt Date: 20191213
  Transmission Date: 20200122
  Serious: Yes (Other)
  Sender: FDA-Public Use
  Company Number: PHHY2019GB178928

PATIENT
  Age: 73 Year
  Sex: Male

DRUGS (2)
  1. SANDOSTATIN LAR DEPOT [Suspect]
     Active Substance: OCTREOTIDE ACETATE
     Indication: NEUROENDOCRINE TUMOUR
     Dosage: 30 MG, QMO
     Route: 030
  2. SANDOSTATIN LAR DEPOT [Suspect]
     Active Substance: OCTREOTIDE ACETATE
     Dosage: 30 MG, Q3W
     Route: 030

REACTIONS (10)
  - Infrequent bowel movements [Recovering/Resolving]
  - Frequent bowel movements [Not Recovered/Not Resolved]
  - Weight decreased [Recovering/Resolving]
  - Peripheral swelling [Not Recovered/Not Resolved]
  - Neuroendocrine tumour [Not Recovered/Not Resolved]
  - Cardiac valve thickening [Not Recovered/Not Resolved]
  - Flushing [Not Recovered/Not Resolved]
  - Inappropriate schedule of product administration [Unknown]
  - Malignant neoplasm progression [Not Recovered/Not Resolved]
  - Neurogenic bowel [Recovering/Resolving]

NARRATIVE: CASE EVENT DATE: 201910
